FAERS Safety Report 22349357 (Version 1)
Quarter: 2023Q2

REPORT INFORMATION
  Report Type: Spontaneous
  Country: US (occurrence: US)
  Receive Date: 20230522
  Receipt Date: 20230522
  Transmission Date: 20230722
  Serious: Yes (Other)
  Sender: FDA-Public Use
  Company Number: US-BAYER-2023A066334

PATIENT
  Age: 85 Year
  Sex: Male

DRUGS (1)
  1. KERENDIA [Suspect]
     Active Substance: FINERENONE
     Dosage: UNK
     Dates: start: 20230501, end: 20230508

REACTIONS (5)
  - Adverse drug reaction [Not Recovered/Not Resolved]
  - Nightmare [None]
  - Mobility decreased [None]
  - Feeling cold [None]
  - Injury [None]

NARRATIVE: CASE EVENT DATE: 20230501
